FAERS Safety Report 25770025 (Version 2)
Quarter: 2025Q3

REPORT INFORMATION
  Report Type: Spontaneous
  Country: US (occurrence: US)
  Receive Date: 20250907
  Receipt Date: 20250926
  Transmission Date: 20251021
  Serious: No
  Sender: Haleon PLC
  Company Number: US-HALEON-2261333

PATIENT
  Age: 88 Year
  Sex: Female

DRUGS (1)
  1. GAS-X ULTRA STRENGTH ANTIGAS SOFTGELS [Suspect]
     Active Substance: DIMETHICONE
     Indication: Flatulence

REACTIONS (2)
  - Epistaxis [Recovered/Resolved]
  - Drug ineffective [Unknown]
